FAERS Safety Report 19879231 (Version 1)
Quarter: 2021Q3

REPORT INFORMATION
  Report Type: Spontaneous
  Country: CN (occurrence: CN)
  Receive Date: 20210923
  Receipt Date: 20210923
  Transmission Date: 20211014
  Serious: Yes (Other)
  Sender: FDA-Public Use
  Company Number: CN-ROCHE-2918144

PATIENT
  Age: 59 Year
  Sex: Female
  Weight: 70 kg

DRUGS (9)
  1. AVASTIN [Suspect]
     Active Substance: BEVACIZUMAB
     Indication: UTERINE CANCER
  2. AVASTIN [Suspect]
     Active Substance: BEVACIZUMAB
     Indication: METASTASES TO LUNG
  3. OXALIPLATIN AND MANNITOL [Concomitant]
     Active Substance: OXALIPLATIN
     Indication: METASTASES TO LUNG
  4. OXALIPLATIN AND MANNITOL [Concomitant]
     Active Substance: OXALIPLATIN
     Indication: OVARIAN CANCER
     Route: 041
     Dates: start: 20210826
  5. GEMCITABINE HYDROCHLORIDE. [Concomitant]
     Active Substance: GEMCITABINE HYDROCHLORIDE
     Indication: METASTASES TO LUNG
  6. AVASTIN [Suspect]
     Active Substance: BEVACIZUMAB
     Indication: OVARIAN CANCER
     Route: 041
     Dates: start: 20210826
  7. OXALIPLATIN AND MANNITOL [Concomitant]
     Active Substance: OXALIPLATIN
     Indication: UTERINE CANCER
  8. GEMCITABINE HYDROCHLORIDE. [Concomitant]
     Active Substance: GEMCITABINE HYDROCHLORIDE
     Indication: OVARIAN CANCER
     Route: 041
     Dates: start: 20210826
  9. GEMCITABINE HYDROCHLORIDE. [Concomitant]
     Active Substance: GEMCITABINE HYDROCHLORIDE
     Indication: UTERINE CANCER

REACTIONS (7)
  - Decreased appetite [Recovering/Resolving]
  - Red blood cell count decreased [Unknown]
  - Platelet count decreased [Recovered/Resolved]
  - Haemoglobin decreased [Unknown]
  - Off label use [Unknown]
  - Asthenia [Recovering/Resolving]
  - White blood cell count decreased [Recovering/Resolving]

NARRATIVE: CASE EVENT DATE: 20210910
